FAERS Safety Report 6078546-2 (Version None)
Quarter: 2009Q1

REPORT INFORMATION
  Report Type: 
  Country: None (occurrence: None)
  Receive Date: 20090212
  Receipt Date: 20090212
  Transmission Date: 20090719
  Serious: Yes (Hospitalization)
  Sender: FDA-Public Use
  Company Number: None

PATIENT
  Age: 52 Year
  Sex: Male
  Weight: 78.6 kg

DRUGS (3)
  1. OXALIPLATIN [Suspect]
     Indication: GASTRIC CANCER
     Dosage: 130 MG Q21 DAYS IV
     Route: 042
  2. CETUXIMAB [Suspect]
     Indication: GASTRIC CANCER
     Dosage: 250 MG/M2 DAYS 1, 8, 15 IV
     Route: 042
  3. CAPECITABINE [Suspect]
     Indication: GASTRIC CANCER
     Dosage: 850MG/M2 BIDX14 D PO
     Route: 048

REACTIONS (3)
  - HEPATIC STEATOSIS [None]
  - MALIGNANT MESENTERIC NEOPLASM [None]
  - PANCREATITIS [None]
